FAERS Safety Report 15879632 (Version 1)
Quarter: 2019Q1

REPORT INFORMATION
  Report Type: Spontaneous
  Country: FR (occurrence: FR)
  Receive Date: 20190128
  Receipt Date: 20190128
  Transmission Date: 20190417
  Serious: Yes (Hospitalization)
  Sender: FDA-Public Use
  Company Number: FR-MYLANLABS-2019M1007249

PATIENT
  Age: 64 Year
  Sex: Female

DRUGS (1)
  1. FONDAPARINUX [Suspect]
     Active Substance: FONDAPARINUX
     Indication: PROPHYLAXIS
     Dosage: 7.5 MILLIGRAM, QD
     Route: 058
     Dates: end: 20181115

REACTIONS (3)
  - Injection site haematoma [Recovered/Resolved]
  - Haemoglobin decreased [Recovered/Resolved]
  - Incorrect dose administered [Unknown]

NARRATIVE: CASE EVENT DATE: 201811
